FAERS Safety Report 7238923-0 (Version None)
Quarter: 2011Q1

REPORT INFORMATION
  Report Type: 
  Country: None (occurrence: None)
  Receive Date: 20110119
  Receipt Date: 20110119
  Transmission Date: 20110831
  Serious: Yes (Other)
  Sender: FDA-Public Use
  Company Number: None

PATIENT

DRUGS (1)
  1. RECLAST [Suspect]

REACTIONS (6)
  - ARTHRALGIA [None]
  - PYREXIA [None]
  - PAIN [None]
  - CHILLS [None]
  - NAUSEA [None]
  - JOINT SWELLING [None]
